FAERS Safety Report 8454078-9 (Version None)
Quarter: 2012Q2

REPORT INFORMATION
  Report Type: 
  Country: None (occurrence: None)
  Receive Date: 20120620
  Receipt Date: 20120612
  Transmission Date: 20120825
  Serious: Yes (Other)
  Sender: FDA-Public Use
  Company Number: US-PFIZER INC-2012130227

PATIENT
  Sex: Female
  Weight: 61.224 kg

DRUGS (9)
  1. NEURONTIN [Suspect]
     Indication: BACK PAIN
  2. PREMARIN [Concomitant]
     Dosage: UNK
  3. NEURONTIN [Suspect]
     Indication: FIBROMYALGIA
     Dosage: UNK
     Dates: start: 20080401
  4. LIPITOR [Concomitant]
     Dosage: UNK
  5. NEURONTIN [Suspect]
     Indication: NECK PAIN
  6. LYRICA [Suspect]
     Indication: FIBROMYALGIA
     Dosage: 75 MG, 2X/DAY
     Route: 048
  7. LYRICA [Suspect]
     Dosage: UNK
     Route: 048
  8. NEURONTIN [Suspect]
     Indication: NERVE INJURY
  9. NORVASC [Concomitant]
     Dosage: UNK

REACTIONS (17)
  - TOOTH DISORDER [None]
  - HEADACHE [None]
  - DRUG HYPERSENSITIVITY [None]
  - FALL [None]
  - CONCUSSION [None]
  - FACE INJURY [None]
  - IMPAIRED WORK ABILITY [None]
  - SOMNOLENCE [None]
  - PAIN [None]
  - MEMORY IMPAIRMENT [None]
  - THINKING ABNORMAL [None]
  - PAIN IN EXTREMITY [None]
  - GAIT DISTURBANCE [None]
  - JAW DISORDER [None]
  - PERIORBITAL HAEMATOMA [None]
  - GINGIVAL BLEEDING [None]
  - LETHARGY [None]
